FAERS Safety Report 7979041-3 (Version None)
Quarter: 2011Q4

REPORT INFORMATION
  Report Type: 
  Country: None (occurrence: None)
  Receive Date: 20111214
  Receipt Date: 20111210
  Transmission Date: 20120403
  Serious: No
  Sender: FDA-Public Use
  Company Number: US-PFIZER INC-2011301252

PATIENT
  Sex: Female
  Weight: 80.7 kg

DRUGS (6)
  1. LISINOPRIL [Suspect]
     Dosage: 40 MG, UNK
     Route: 065
     Dates: start: 20111209, end: 20111209
  2. LISINOPRIL [Suspect]
     Indication: HYPERTENSION
     Dosage: 20 MG, DAILY
     Route: 065
  3. WARFARIN SODIUM [Concomitant]
     Indication: THROMBOSIS
     Dosage: 5 MG, DAILY
     Dates: start: 20060101
  4. SIMVASTATIN [Concomitant]
     Indication: BLOOD CHOLESTEROL INCREASED
     Dosage: 20 MG, DAILY
  5. IBUPROFEN (ADVIL) [Suspect]
     Indication: PAIN IN EXTREMITY
     Dosage: 200 MG, DAILY
     Route: 065
     Dates: end: 20110101
  6. IBUPROFEN (ADVIL) [Suspect]
     Indication: MUSCULOSKELETAL PAIN
     Dosage: 200 MG, (TWO TO THREE TIMES A DAY AS NEEDED)
     Route: 065
     Dates: start: 20110101, end: 20111210

REACTIONS (4)
  - MUSCULOSKELETAL PAIN [None]
  - INCORRECT DOSE ADMINISTERED [None]
  - PAIN IN EXTREMITY [None]
  - HYPERTENSION [None]
